FAERS Safety Report 16379353 (Version 1)
Quarter: 2019Q2

REPORT INFORMATION
  Report Type: Report from Study
  Country: US (occurrence: US)
  Receive Date: 20190531
  Receipt Date: 20190531
  Transmission Date: 20190711
  Serious: Yes (Hospitalization)
  Sender: FDA-Public Use
  Company Number: PHEH2019US023109

PATIENT
  Age: 61 Year

DRUGS (2)
  1. COSENTYX [Suspect]
     Active Substance: SECUKINUMAB
     Indication: URTICARIA
  2. COSENTYX [Suspect]
     Active Substance: SECUKINUMAB
     Indication: PSORIASIS
     Dosage: 300 MG, QMO
     Route: 058
     Dates: start: 20170926

REACTIONS (4)
  - Blood pressure decreased [Unknown]
  - Product use in unapproved indication [Unknown]
  - Acute kidney injury [Unknown]
  - Renal disorder [Unknown]

NARRATIVE: CASE EVENT DATE: 20190515
